FAERS Safety Report 7785433-8 (Version None)
Quarter: 2011Q3

REPORT INFORMATION
  Report Type: 
  Country: None (occurrence: None)
  Receive Date: 20110929
  Receipt Date: 20110916
  Transmission Date: 20111222
  Serious: Yes (Death, Other)
  Sender: FDA-Public Use
  Company Number: PL-RANBAXY-2011RR-47274

PATIENT
  Age: 69 Year
  Sex: Female

DRUGS (10)
  1. MIRTAZAPINE [Suspect]
     Indication: PRODUCT USED FOR UNKNOWN INDICATION
     Dosage: 30 MG/DAY
     Route: 065
  2. QUETIAPINE [Suspect]
     Dosage: 300 MG/DAY
     Route: 065
  3. REBOXETINE [Suspect]
     Indication: DEPRESSION
     Dosage: 4 MG/DAY
     Route: 065
  4. PAROXETINE HCL [Suspect]
     Indication: DEPRESSION
     Dosage: 20 MG/DAY
     Route: 065
  5. ESCITALOPRAM [Suspect]
     Indication: DEPRESSION
     Dosage: 20 MG/DAY
     Route: 065
  6. VENLAFAXINE HYDROCHLORIDE [Suspect]
     Indication: DEPRESSION
     Dosage: 225 MG/DAY
     Route: 065
  7. SERTRALINE HYDROCHLORIDE [Suspect]
     Indication: DEPRESSION
     Dosage: 100 MG/DAY
     Route: 065
  8. MIRTAZAPINE [Suspect]
     Dosage: 45 MG/DAY
     Route: 065
  9. QUETIAPINE [Suspect]
     Indication: DEPRESSION
     Dosage: 100 MG/DAY
     Route: 065
  10. OLANZAPINE [Suspect]
     Indication: DEPRESSION
     Dosage: 5 MG/DAY
     Route: 065

REACTIONS (1)
  - EMBOLISM VENOUS [None]
